FAERS Safety Report 15849391 (Version 2)
Quarter: 2019Q1

REPORT INFORMATION
  Report Type: Spontaneous
  Country: BR (occurrence: BR)
  Receive Date: 20190121
  Receipt Date: 20190207
  Transmission Date: 20190417
  Serious: Yes (Other)
  Sender: FDA-Public Use
  Company Number: BR-SA-2019SA012998

PATIENT
  Sex: Female

DRUGS (1)
  1. CLEXANE [Suspect]
     Active Substance: ENOXAPARIN SODIUM
     Dosage: 40 MG / 2 SYRINGES
     Route: 065

REACTIONS (2)
  - Metabolic surgery [Unknown]
  - Overweight [Unknown]

NARRATIVE: CASE EVENT DATE: 2017
